FAERS Safety Report 23165599 (Version 1)
Quarter: 2023Q4

REPORT INFORMATION
  Report Type: Spontaneous
  Country: US (occurrence: US)
  Receive Date: 20231109
  Receipt Date: 20231109
  Transmission Date: 20240110
  Serious: No
  Sender: FDA-Public Use
  Company Number: US-ANIPHARMA-2023-US-034399

PATIENT
  Sex: Male

DRUGS (6)
  1. CORTICOTROPIN [Suspect]
     Active Substance: CORTICOTROPIN
     Indication: Rheumatoid arthritis
     Dosage: 80 UNITS ONE TIME PER WEEK
     Route: 058
  2. LISINOPRIL/HYDROCHLOROTHI [Concomitant]
     Route: 065
  3. PROBENECID [Concomitant]
     Active Substance: PROBENECID
     Route: 065
  4. COLCRYS [Concomitant]
     Active Substance: COLCHICINE
     Route: 065
  5. ELIQUIS [Concomitant]
     Active Substance: APIXABAN
     Route: 065
  6. KINERET [Concomitant]
     Active Substance: ANAKINRA
     Route: 065

REACTIONS (1)
  - Therapeutic product effect incomplete [Unknown]
